FAERS Safety Report 8061983-4 (Version None)
Quarter: 2012Q1

REPORT INFORMATION
  Report Type: 
  Country: None (occurrence: None)
  Receive Date: 20120123
  Receipt Date: 20120111
  Transmission Date: 20120608
  Serious: Yes (Hospitalization)
  Sender: FDA-Public Use
  Company Number: US-BAYER-2010-002186

PATIENT
  Age: 25 Year
  Sex: Female
  Weight: 58.957 kg

DRUGS (7)
  1. OMEPRAZOLE [Concomitant]
     Dosage: 40 MG, UNK
  2. YAZ [Suspect]
     Indication: PRODUCT USED FOR UNKNOWN INDICATION
  3. DROSPIRENONE AND ETHINYL ESTRADIOL [Suspect]
  4. SULFAMETHOXAZOLE [Concomitant]
  5. FLUCONAZOLE [Concomitant]
     Dosage: 150 MG, UNK
  6. SYNTHROID [Concomitant]
     Indication: HYPOTHYROIDISM
     Dosage: 50 ?G, UNK
     Dates: start: 20080101
  7. EFFEXOR [Concomitant]
     Indication: ANXIETY
     Dosage: 37.5 MG, UNK
     Dates: start: 20070101

REACTIONS (3)
  - EMOTIONAL DISTRESS [None]
  - DEPRESSION [None]
  - DEEP VEIN THROMBOSIS [None]
